FAERS Safety Report 10336415 (Version 1)
Quarter: 2014Q3

REPORT INFORMATION
  Report Type: Spontaneous
  Country: US (occurrence: US)
  Receive Date: 20140723
  Receipt Date: 20140723
  Transmission Date: 20150326
  Serious: No
  Sender: FDA-Public Use
  Company Number: US-BRISTOL-MYERS SQUIBB COMPANY-20602959

PATIENT
  Age: 78 Year
  Sex: Male

DRUGS (12)
  1. METFORMIN [Concomitant]
     Active Substance: METFORMIN HYDROCHLORIDE
  2. MICONAZOLE [Concomitant]
     Active Substance: MICONAZOLE
  3. HYDROCHLOROTHIAZIDE. [Concomitant]
     Active Substance: HYDROCHLOROTHIAZIDE
  4. DOXAZOSIN [Concomitant]
     Active Substance: DOXAZOSIN\DOXAZOSIN MESYLATE
  5. LOSARTAN [Concomitant]
     Active Substance: LOSARTAN
  6. GLIMEPIRIDE. [Interacting]
     Active Substance: GLIMEPIRIDE
  7. FLECAINIDE [Concomitant]
     Active Substance: FLECAINIDE
  8. CICLOPIROX. [Concomitant]
     Active Substance: CICLOPIROX
  9. FLUNISOLIDE. [Concomitant]
     Active Substance: FLUNISOLIDE
  10. COUMADIN [Suspect]
     Active Substance: WARFARIN SODIUM
     Dosage: 10MG,7.5MG
  11. PRAVASTATIN [Concomitant]
     Active Substance: PRAVASTATIN\PRAVASTATIN SODIUM
  12. CORTISPORIN [Concomitant]
     Active Substance: BACITRACIN ZINC\HYDROCORTISONE\NEOMYCIN SULFATE\POLYMYXIN B SULFATE

REACTIONS (4)
  - Drug interaction [Unknown]
  - International normalised ratio decreased [Unknown]
  - Cardiac flutter [Unknown]
  - Heart rate increased [Unknown]
